FAERS Safety Report 15374107 (Version 2)
Quarter: 2018Q3

REPORT INFORMATION
  Report Type: Spontaneous
  Country: JP (occurrence: JP)
  Receive Date: 20180912
  Receipt Date: 20180919
  Transmission Date: 20181010
  Serious: Yes (Other)
  Sender: FDA-Public Use
  Company Number: JP-BAYER-2018-170230

PATIENT
  Age: 71 Year
  Sex: Male

DRUGS (9)
  1. ADALAT CC [Concomitant]
     Active Substance: NIFEDIPINE
  2. BAYASPIRIN 100 MG [Suspect]
     Active Substance: ASPIRIN
     Indication: CAROTID ARTERIOSCLEROSIS
     Dosage: 100 MG, QD
     Route: 048
     Dates: start: 20180608, end: 20180709
  3. AIMIX [Concomitant]
     Active Substance: AMLODIPINE BESYLATE\IRBESARTAN
  4. FORXIGA [Concomitant]
     Active Substance: DAPAGLIFLOZIN
  5. ACTOS [Concomitant]
     Active Substance: PIOGLITAZONE HYDROCHLORIDE
  6. MIGLITOL. [Concomitant]
     Active Substance: MIGLITOL
  7. NEXIUM [Concomitant]
     Active Substance: ESOMEPRAZOLE MAGNESIUM
  8. JANUVIA [Concomitant]
     Active Substance: SITAGLIPTIN PHOSPHATE
  9. KERLONG [Concomitant]
     Active Substance: BETAXOLOL HYDROCHLORIDE

REACTIONS (1)
  - Deafness unilateral [Not Recovered/Not Resolved]

NARRATIVE: CASE EVENT DATE: 20180613
